FAERS Safety Report 13510444 (Version 3)
Quarter: 2017Q2

REPORT INFORMATION
  Report Type: Report from Study
  Country: CA (occurrence: CA)
  Receive Date: 20170503
  Receipt Date: 20170518
  Transmission Date: 20170830
  Serious: Yes (Hospitalization)
  Sender: FDA-Public Use
  Company Number: CA-PFIZER INC-2017185632

PATIENT
  Age: 79 Year
  Sex: Female
  Weight: 86 kg

DRUGS (25)
  1. MINT GLICLAZIDE [Concomitant]
     Indication: DIABETES MELLITUS
     Dosage: 80 MG, 1X/DAY
     Route: 048
     Dates: start: 201301
  2. STATEX /00036302/ [Concomitant]
     Active Substance: MORPHINE SULFATE
     Indication: RHEUMATOID ARTHRITIS
     Dosage: 5 MG, AS NEEDED
     Route: 048
     Dates: start: 20161214
  3. INFLECTRA [Suspect]
     Active Substance: INFLIXIMAB-DYYB
     Dosage: 3 MG/KG EVERY 2 WEEKS (2 WEEKS, 4 WEEKS, 8 WEEKS)
     Route: 042
     Dates: start: 20161225, end: 20170116
  4. DEXILANT [Concomitant]
     Active Substance: DEXLANSOPRAZOLE
     Indication: GASTRIC POLYPS
     Dosage: 60 MG, DAILY
     Route: 048
     Dates: start: 201601
  5. PMS PREGABALIN [Concomitant]
     Indication: DIABETIC NEUROPATHY
     Dosage: 25 MG, 1X/DAY
     Route: 048
     Dates: start: 201301
  6. NITRO-DUR [Concomitant]
     Active Substance: NITROGLYCERIN
     Indication: ANXIETY
     Dosage: 1 DF, DAILY
     Route: 062
     Dates: start: 201301
  7. APO-ALLOPURINOL [Concomitant]
     Active Substance: ALLOPURINOL
     Indication: GOUT
     Dosage: 50 MG, 1X/DAY
     Route: 048
     Dates: start: 201201
  8. INFLECTRA [Suspect]
     Active Substance: INFLIXIMAB-DYYB
     Dosage: 3 MG/KG, EVERY 2 MONTHS
     Route: 042
     Dates: start: 20170313
  9. METHOTREXATE SODIUM. [Suspect]
     Active Substance: METHOTREXATE SODIUM
     Indication: RHEUMATOID ARTHRITIS
     Dosage: 20 MG, EVERY WEEK
     Route: 058
     Dates: start: 201601
  10. APO-FUROSEMIDE [Concomitant]
     Active Substance: FUROSEMIDE
     Indication: HYPERTENSION
     Dosage: 40 MG, DAILY
     Route: 048
     Dates: start: 200001
  11. ONGLYZA [Concomitant]
     Active Substance: SAXAGLIPTIN HYDROCHLORIDE
     Indication: DIABETES MELLITUS
     Dosage: 2.5 MG, 1X/DAY
     Route: 048
     Dates: start: 201301
  12. LANTUS XR [Concomitant]
     Active Substance: INSULIN GLARGINE
     Indication: DIABETES MELLITUS
     Dosage: 16 IU, DAILY
     Route: 058
     Dates: start: 201001
  13. PMS ATORVASTATIN [Concomitant]
     Indication: HYPERCHOLESTEROLAEMIA
     Dosage: 10 MG, DAILY
     Route: 048
     Dates: start: 200601
  14. SYSTANE (HYPROMELLOSE 2910 (4000 MPA.S)) [Concomitant]
     Active Substance: HYPROMELLOSE 2910 (4000 MPA.S)
     Indication: EYE LUBRICATION THERAPY
     Dosage: 1 DF, 1X/DAY
     Route: 047
     Dates: start: 201301
  15. BISOPROLOL [Concomitant]
     Active Substance: BISOPROLOL
     Indication: HYPERTENSION
     Dosage: 7.5 MG, DAILY
     Route: 048
     Dates: start: 201301
  16. MAGNESIUM [Concomitant]
     Active Substance: MAGNESIUM
     Indication: SUPPLEMENTATION THERAPY
     Dosage: 100 MG, 2X/DAY
     Route: 048
     Dates: start: 201601
  17. PMS COLCHICINE [Concomitant]
     Indication: GOUT
     Dosage: 0.3 MG, 1X/DAY
     Route: 048
     Dates: start: 201201
  18. NOVORAPID [Concomitant]
     Active Substance: INSULIN ASPART
     Indication: DIABETES MELLITUS
     Dosage: 28 IU, DAILY
     Route: 058
     Dates: start: 201001
  19. LEUCOVORIN /00566701/ [Concomitant]
     Active Substance: LEUCOVORIN
     Indication: RHEUMATOID ARTHRITIS
     Dosage: 10 MG, WEEKLY
     Route: 048
     Dates: start: 201601
  20. LOWPRIN [Concomitant]
     Indication: HYPERTENSION
     Dosage: 80 MG, DAILY
     Route: 048
     Dates: start: 200001
  21. PROMETRIUM [Concomitant]
     Active Substance: PROGESTERONE
     Indication: MENOPAUSE
     Dosage: 100 MG, DAILY
     Route: 048
     Dates: start: 199001
  22. ESTRADOT [Concomitant]
     Active Substance: ESTRADIOL
     Indication: MENOPAUSE
     Dosage: 0.025 MG, 2X PER WEEK
     Route: 062
     Dates: start: 199001
  23. EUROFOLIC [Concomitant]
     Indication: RHEUMATOID ARTHRITIS
     Dosage: 5 MG, 5 TIMES PER WEEK
     Route: 048
     Dates: start: 201601
  24. PMS-LEFLUNOMIDE [Concomitant]
     Active Substance: LEFLUNOMIDE
     Indication: RHEUMATOID ARTHRITIS
     Dosage: 20 MG, EVERY 2 DAYS
     Route: 048
     Dates: start: 201601
  25. PMS-PANTOPRAZOLE [Concomitant]
     Active Substance: PANTOPRAZOLE SODIUM
     Indication: PROPHYLAXIS AGAINST GASTROINTESTINAL ULCER
     Dosage: 40 MG, DAILY
     Route: 048
     Dates: start: 201501

REACTIONS (1)
  - Bronchitis [Recovered/Resolved]

NARRATIVE: CASE EVENT DATE: 20170424
